FAERS Safety Report 19934651 (Version 1)
Quarter: 2021Q4

REPORT INFORMATION
  Report Type: Report from Study
  Country: PL (occurrence: PL)
  Receive Date: 20211008
  Receipt Date: 20211008
  Transmission Date: 20220303
  Serious: Yes (Other)
  Sender: FDA-Public Use
  Company Number: PL-TAKEDA-2021TUS060653

PATIENT
  Age: 52 Year
  Sex: Male
  Weight: 64.5 kg

DRUGS (1)
  1. BRENTUXIMAB VEDOTIN [Suspect]
     Active Substance: BRENTUXIMAB VEDOTIN
     Indication: Cutaneous T-cell lymphoma
     Dosage: UNK, Q3WEEKS
     Route: 042
     Dates: start: 20201204

REACTIONS (2)
  - Peripheral sensorimotor neuropathy [Recovering/Resolving]
  - Ascariasis [Recovered/Resolved]

NARRATIVE: CASE EVENT DATE: 20210701
